FAERS Safety Report 11321508 (Version 3)
Quarter: 2015Q4

REPORT INFORMATION
  Report Type: Spontaneous
  Country: US (occurrence: US)
  Receive Date: 20150729
  Receipt Date: 20151123
  Transmission Date: 20160304
  Serious: No
  Sender: FDA-Public Use
  Company Number: US-PFIZER INC-2015237854

PATIENT
  Age: 70 Year
  Sex: Male
  Weight: 93 kg

DRUGS (4)
  1. TIKOSYN [Suspect]
     Active Substance: DOFETILIDE
     Dosage: 250 UG, 2X/DAY
  2. WARFARIN [Suspect]
     Active Substance: WARFARIN
     Dosage: 5 MG, DAILY
     Dates: start: 20150619
  3. TIKOSYN [Suspect]
     Active Substance: DOFETILIDE
     Indication: ATRIAL FIBRILLATION
     Dosage: 500 UG, 2X/DAY
     Route: 048
  4. TIKOSYN [Suspect]
     Active Substance: DOFETILIDE
     Dosage: 500 UG, UNK

REACTIONS (9)
  - Diarrhoea [Recovering/Resolving]
  - Balance disorder [Recovering/Resolving]
  - Oropharyngeal pain [Recovered/Resolved]
  - Cognitive disorder [Unknown]
  - Headache [Recovered/Resolved]
  - Head discomfort [Recovered/Resolved]
  - Blood urea increased [Unknown]
  - Dysphonia [Not Recovered/Not Resolved]
  - Vision blurred [Recovering/Resolving]

NARRATIVE: CASE EVENT DATE: 20150629
